FAERS Safety Report 16647385 (Version 2)
Quarter: 2019Q4

REPORT INFORMATION
  Report Type: Spontaneous
  Country: US (occurrence: US)
  Receive Date: 20190730
  Receipt Date: 20191008
  Transmission Date: 20200122
  Serious: No
  Sender: FDA-Public Use
  Company Number: US-NEUROCRINE BIOSCIENCES INC.-2019NBI02006

PATIENT
  Age: 40 Year
  Sex: Male

DRUGS (2)
  1. INGREZZA [Suspect]
     Active Substance: VALBENAZINE
     Route: 048
     Dates: start: 20190711, end: 20190712
  2. INGREZZA [Suspect]
     Active Substance: VALBENAZINE
     Indication: TARDIVE DYSKINESIA
     Route: 048
     Dates: start: 20190626, end: 20190710

REACTIONS (5)
  - Mood altered [Recovered/Resolved]
  - Tremor [Unknown]
  - Aggression [Unknown]
  - Abnormal behaviour [Unknown]
  - Listless [Unknown]

NARRATIVE: CASE EVENT DATE: 2019
